FAERS Safety Report 18309762 (Version 3)
Quarter: 2020Q4

REPORT INFORMATION
  Report Type: Report from Study
  Country: US (occurrence: US)
  Receive Date: 20200924
  Receipt Date: 20201201
  Transmission Date: 20210113
  Serious: Yes (Other)
  Sender: FDA-Public Use
  Company Number: US-MALLINCKRODT-T202003614

PATIENT
  Sex: Female
  Weight: 64 kg

DRUGS (1)
  1. REPOSITORY CORTICOTROPIN INJECTION [Suspect]
     Active Substance: CORTICOTROPIN
     Indication: PRODUCT USED FOR UNKNOWN INDICATION
     Dosage: UNK
     Route: 065

REACTIONS (11)
  - Diabetes mellitus [Unknown]
  - Injection site bruising [Unknown]
  - Limb mass [Not Recovered/Not Resolved]
  - Hypoaesthesia [Unknown]
  - Hyperhidrosis [Unknown]
  - Wound [Unknown]
  - Neuralgia [Unknown]
  - Injection site pain [Unknown]
  - Weight increased [Unknown]
  - Injection site mass [Not Recovered/Not Resolved]
  - Food craving [Unknown]

NARRATIVE: CASE EVENT DATE: 2020
